FAERS Safety Report 8302421-3 (Version None)
Quarter: 2012Q2

REPORT INFORMATION
  Report Type: 
  Country: None (occurrence: None)
  Receive Date: 20120420
  Receipt Date: 20120413
  Transmission Date: 20120825
  Serious: Yes (Other)
  Sender: FDA-Public Use
  Company Number: JP-JNJFOC-20120308420

PATIENT
  Age: 80 Year
  Sex: Female

DRUGS (4)
  1. UNKNOWN MEDICATION [Suspect]
     Indication: PRODUCT USED FOR UNKNOWN INDICATION
     Route: 065
  2. TIZANIDINE HYDROCHLORIDE [Concomitant]
     Dosage: 1 PER 1 DAY
     Route: 048
     Dates: start: 20120309
  3. ZOLPIDEM [Concomitant]
     Dosage: 1 PER 1 DAY
     Route: 048
     Dates: start: 20120309
  4. TRAMADOL HYDROCHLORIDE/ACETAMINOPHEN [Suspect]
     Indication: PRODUCT USED FOR UNKNOWN INDICATION
     Dosage: 1 DOSE THREE PER DAY
     Route: 048
     Dates: start: 20120309

REACTIONS (1)
  - GASTRIC ULCER [None]
